FAERS Safety Report 25388354 (Version 3)
Quarter: 2025Q3

REPORT INFORMATION
  Report Type: Spontaneous
  Country: US (occurrence: US)
  Receive Date: 20250603
  Receipt Date: 20250809
  Transmission Date: 20251021
  Serious: Yes (Hospitalization, Other)
  Sender: ALEXION PHARMACEUTICALS
  Company Number: US-AstraZeneca-CH-00879673A

PATIENT
  Sex: Female

DRUGS (1)
  1. ULTOMIRIS [Suspect]
     Active Substance: RAVULIZUMAB-CWVZ
     Indication: Myasthenia gravis
     Route: 065

REACTIONS (10)
  - Hip fracture [Unknown]
  - Fall [Unknown]
  - Myasthenia gravis crisis [Unknown]
  - Pneumonia aspiration [Unknown]
  - Pulmonary embolism [Unknown]
  - Vomiting [Unknown]
  - Dyspnoea [Unknown]
  - Speech disorder [Unknown]
  - Oxygen saturation decreased [Unknown]
  - Influenza [Unknown]

NARRATIVE: CASE EVENT DATE: 20250501
